FAERS Safety Report 19854845 (Version 1)
Quarter: 2021Q3

REPORT INFORMATION
  Report Type: Spontaneous
  Country: US (occurrence: US)
  Receive Date: 20210920
  Receipt Date: 20210920
  Transmission Date: 20211014
  Serious: No
  Sender: FDA-Public Use
  Company Number: US-AUROBINDO-AUR-APL-2021-022267

PATIENT

DRUGS (4)
  1. INSULIN [Concomitant]
     Active Substance: INSULIN NOS
     Indication: PRODUCT USED FOR UNKNOWN INDICATION
     Dosage: UNK
     Route: 065
  2. METFORMIN [Concomitant]
     Active Substance: METFORMIN HYDROCHLORIDE
     Indication: DIABETES MELLITUS
     Dosage: UNK
     Route: 065
  3. TOPROL XL [Concomitant]
     Active Substance: METOPROLOL SUCCINATE
     Indication: BLOOD PRESSURE MEASUREMENT
     Dosage: 100 MILLIGRAM
     Route: 065
  4. ALPRAZOLAM TABLETS USP 1MG [Suspect]
     Active Substance: ALPRAZOLAM
     Indication: PRODUCT USED FOR UNKNOWN INDICATION
     Dosage: 1 DOSAGE FORM, 3 TIMES A DAY
     Route: 048

REACTIONS (2)
  - Product contamination [Unknown]
  - Drug screen positive [Unknown]
